APPROVED DRUG PRODUCT: CETIRIZINE HYDROCHLORIDE
Active Ingredient: CETIRIZINE HYDROCHLORIDE
Strength: 5MG/5ML
Dosage Form/Route: SOLUTION;ORAL
Application: A078757 | Product #001
Applicant: WOCKHARDT LTD
Approved: Aug 28, 2009 | RLD: No | RS: No | Type: DISCN